FAERS Safety Report 18116183 (Version 2)
Quarter: 2020Q3

REPORT INFORMATION
  Report Type: Report from Study
  Country: BR (occurrence: BR)
  Receive Date: 20200805
  Receipt Date: 20200924
  Transmission Date: 20201103
  Serious: Yes (Hospitalization, Other)
  Sender: FDA-Public Use
  Company Number: BR-TAKEDA-2020TUS033135

PATIENT
  Sex: Male
  Weight: 77 kg

DRUGS (13)
  1. INSULIN [Concomitant]
     Active Substance: INSULIN NOS
     Indication: DIABETES MELLITUS
     Dosage: UNK
     Route: 065
  2. PAROXETINE. [Concomitant]
     Active Substance: PAROXETINE
     Indication: ANXIETY
  3. VEDOLIZUMAB [Suspect]
     Active Substance: VEDOLIZUMAB
     Indication: CROHN^S DISEASE
     Dosage: 300 MILLIGRAM
     Route: 042
     Dates: start: 20200714
  4. AZUKON [Concomitant]
     Active Substance: GLICLAZIDE
     Indication: DIABETES MELLITUS
     Dosage: UNK UNK, QD
     Route: 048
  5. BROMAZEPAM [Concomitant]
     Active Substance: BROMAZEPAM
     Indication: DEPRESSION
     Dosage: UNK UNK, QD
     Route: 048
  6. DIOVAN HCT [Concomitant]
     Active Substance: HYDROCHLOROTHIAZIDE\VALSARTAN
     Indication: HYPERTENSION
     Dosage: UNK UNK, QD
     Route: 048
  7. BROMAZEPAM [Concomitant]
     Active Substance: BROMAZEPAM
     Indication: ANXIETY
  8. PAROXETINE. [Concomitant]
     Active Substance: PAROXETINE
     Indication: DEPRESSION
     Dosage: UNK UNK, QD
     Route: 048
  9. TIROX [Concomitant]
     Indication: HYPERTHYROIDISM
     Dosage: UNK UNK, QD
     Route: 048
     Dates: start: 2010
  10. COMBODART [Concomitant]
     Active Substance: DUTASTERIDE\TAMSULOSIN
     Indication: PROSTATOMEGALY
     Dosage: UNK UNK, QD
     Route: 048
  11. BROMAZEPAN [Concomitant]
     Active Substance: BROMAZEPAM
     Indication: INSOMNIA
     Dosage: UNK
  12. VEDOLIZUMAB [Suspect]
     Active Substance: VEDOLIZUMAB
     Indication: DIVERTICULITIS
  13. NESINA [Suspect]
     Active Substance: ALOGLIPTIN BENZOATE
     Indication: DIABETES MELLITUS
     Dosage: UNK UNK, QD
     Route: 048
     Dates: start: 202001

REACTIONS (4)
  - Crohn^s disease [Not Recovered/Not Resolved]
  - Haematochezia [Not Recovered/Not Resolved]
  - Thrombosis [Recovering/Resolving]
  - Product use in unapproved indication [Unknown]

NARRATIVE: CASE EVENT DATE: 2020
